FAERS Safety Report 25230541 (Version 1)
Quarter: 2025Q2

REPORT INFORMATION
  Report Type: Spontaneous
  Country: US (occurrence: None)
  Receive Date: 20250422
  Receipt Date: 20250422
  Transmission Date: 20250716
  Serious: Yes (Disabling)
  Sender: FDA-CTU
  Company Number: None

PATIENT
  Age: 68 Year
  Sex: Male
  Weight: 138.15 kg

DRUGS (11)
  1. VABYSMO [Suspect]
     Active Substance: FARICIMAB-SVOA
     Indication: Diabetic retinal oedema
     Route: 047
     Dates: start: 20250324, end: 20250325
  2. DOXAZOSIN [Concomitant]
     Active Substance: DOXAZOSIN MESYLATE
  3. LOSARTAN [Concomitant]
     Active Substance: LOSARTAN
  4. CARVEDILOL [Concomitant]
     Active Substance: CARVEDILOL
  5. INSULIN NOS [Concomitant]
     Active Substance: INSULIN NOS
  6. CALCITRIOL [Concomitant]
     Active Substance: CALCITRIOL
  7. LevXXXX (for thyroid) [Concomitant]
  8. DEVICE [Concomitant]
     Active Substance: DEVICE
  9. JWH-018 [Concomitant]
     Active Substance: JWH-018
  10. VITAMIN D3 [Concomitant]
     Active Substance: CHOLECALCIFEROL
  11. TOCOPHEROL [Concomitant]
     Active Substance: TOCOPHEROL

REACTIONS (8)
  - Product communication issue [None]
  - Vision blurred [None]
  - Visual impairment [None]
  - Impaired work ability [None]
  - Photophobia [None]
  - Foreign body sensation in eyes [None]
  - Impaired driving ability [None]
  - Drug ineffective [None]

NARRATIVE: CASE EVENT DATE: 20250324
